FAERS Safety Report 25240867 (Version 1)
Quarter: 2025Q2

REPORT INFORMATION
  Report Type: Spontaneous
  Country: US (occurrence: US)
  Receive Date: 20250425
  Receipt Date: 20250425
  Transmission Date: 20250717
  Serious: Yes (Other)
  Sender: BAUSCH AND LOMB
  Company Number: US-BAUSCH-BL-2025-005318

PATIENT
  Sex: Female

DRUGS (1)
  1. XIFAXAN [Suspect]
     Active Substance: RIFAXIMIN
     Indication: Diarrhoea
     Route: 065

REACTIONS (2)
  - Faecaloma [Recovered/Resolved]
  - Constipation [Not Recovered/Not Resolved]
